FAERS Safety Report 12496603 (Version 1)
Quarter: 2016Q2

REPORT INFORMATION
  Report Type: Spontaneous
  Country: BR (occurrence: BR)
  Receive Date: 20160624
  Receipt Date: 20160624
  Transmission Date: 20160815
  Serious: Yes (Death, Other)
  Sender: FDA-Public Use
  Company Number: BR-009507513-1605BRA012334

PATIENT
  Age: 70 Year
  Sex: Male
  Weight: 43.2 kg

DRUGS (3)
  1. JANUVIA [Suspect]
     Active Substance: SITAGLIPTIN PHOSPHATE
     Dosage: 50 MG, QD
     Route: 048
     Dates: start: 20160223, end: 20160319
  2. JANUVIA [Suspect]
     Active Substance: SITAGLIPTIN PHOSPHATE
     Dosage: 100 MG, QD
     Route: 048
     Dates: start: 20140627, end: 20160222
  3. JANUVIA [Suspect]
     Active Substance: SITAGLIPTIN PHOSPHATE
     Indication: TYPE 2 DIABETES MELLITUS
     Dosage: 50 MG, QD
     Route: 048
     Dates: start: 20120322, end: 20140624

REACTIONS (5)
  - Chronic obstructive pulmonary disease [Fatal]
  - Chronic respiratory failure [Fatal]
  - Cardiac disorder [Fatal]
  - Cardiac failure [Fatal]
  - Myocardial ischaemia [Fatal]
